FAERS Safety Report 16559872 (Version 2)
Quarter: 2019Q3

REPORT INFORMATION
  Report Type: Spontaneous
  Country: GB (occurrence: GB)
  Receive Date: 20190711
  Receipt Date: 20190712
  Transmission Date: 20191004
  Serious: Yes (Disabling, Other)
  Sender: FDA-Public Use
  Company Number: GB-SA-2019SA009438

PATIENT
  Sex: Female

DRUGS (1)
  1. AUBAGIO [Suspect]
     Active Substance: TERIFLUNOMIDE
     Indication: MULTIPLE SCLEROSIS
     Dosage: UNK
     Route: 048
     Dates: start: 201810, end: 201906

REACTIONS (10)
  - Impaired work ability [Unknown]
  - Neuralgia [Unknown]
  - Peripheral coldness [Unknown]
  - Multiple sclerosis relapse [Recovering/Resolving]
  - Paraesthesia [Not Recovered/Not Resolved]
  - Alcohol intolerance [Unknown]
  - Mobility decreased [Unknown]
  - Menstrual disorder [Unknown]
  - Rash [Recovering/Resolving]
  - Alopecia [Unknown]

NARRATIVE: CASE EVENT DATE: 2018
